FAERS Safety Report 8225053-4 (Version None)
Quarter: 2012Q1

REPORT INFORMATION
  Report Type: 
  Country: None (occurrence: None)
  Receive Date: 20120321
  Receipt Date: 20120314
  Transmission Date: 20120608
  Serious: Yes (Other)
  Sender: FDA-Public Use
  Company Number: US-UCBSA-052396

PATIENT
  Age: 43 Year
  Sex: Female

DRUGS (2)
  1. CIMZIA [Suspect]
     Route: 058
     Dates: start: 20110916, end: 20120227
  2. HUMIRA [Concomitant]

REACTIONS (1)
  - ERYTHEMA NODOSUM [None]
